FAERS Safety Report 8121753-5 (Version None)
Quarter: 2012Q1

REPORT INFORMATION
  Report Type: 
  Country: None (occurrence: None)
  Receive Date: 20120208
  Receipt Date: 20120127
  Transmission Date: 20120608
  Serious: Yes (Hospitalization)
  Sender: FDA-Public Use
  Company Number: NL-JNJFOC-20120112953

PATIENT
  Sex: Male
  Weight: 45 kg

DRUGS (4)
  1. ANTIBIOTICS [Concomitant]
     Indication: CROHN'S DISEASE
  2. VITAMIN D [Concomitant]
  3. CALCIUM [Concomitant]
  4. REMICADE [Suspect]
     Indication: CROHN'S DISEASE
     Route: 042
     Dates: start: 20090216

REACTIONS (1)
  - ILEOSTOMY [None]
